FAERS Safety Report 12766947 (Version 2)
Quarter: 2017Q1

REPORT INFORMATION
  Report Type: Report from Study
  Country: US (occurrence: US)
  Receive Date: 20160921
  Receipt Date: 20170103
  Transmission Date: 20170428
  Serious: Yes (Hospitalization)
  Sender: FDA-Public Use
  Company Number: US-BAYER-2016-178561

PATIENT
  Age: 69 Year
  Sex: Female

DRUGS (1)
  1. NEXAVAR [Suspect]
     Active Substance: SORAFENIB
     Indication: PANCREATIC CARCINOMA
     Dosage: 400 MG, BID
     Route: 048
     Dates: start: 20160811, end: 201612

REACTIONS (3)
  - Pain [Unknown]
  - Off label use [None]
  - Surgery [None]

NARRATIVE: CASE EVENT DATE: 2016
